FAERS Safety Report 5629643-4 (Version None)
Quarter: 2008Q1

REPORT INFORMATION
  Report Type: 
  Country: None (occurrence: None)
  Receive Date: 20080218
  Receipt Date: 20080208
  Transmission Date: 20080703
  Serious: Yes (Life-Threatening, Hospitalization, Other)
  Sender: FDA-Public Use
  Company Number: A0697951A

PATIENT
  Age: 48 Year
  Sex: Female

DRUGS (5)
  1. EPZICOM [Suspect]
     Indication: HIV INFECTION
     Dosage: 1TAB SINGLE DOSE
     Route: 048
     Dates: start: 20071130, end: 20071130
  2. NORVIR [Suspect]
     Indication: HIV INFECTION
     Dosage: 100MG TWICE PER DAY
     Route: 048
     Dates: start: 20051214, end: 20071130
  3. INVIRASE [Suspect]
     Indication: HIV INFECTION
     Dosage: 1000MG TWICE PER DAY
     Route: 048
     Dates: start: 20071127, end: 20071130
  4. DILANTIN [Concomitant]
     Indication: CONVULSION PROPHYLAXIS
  5. SYNTHROID [Concomitant]

REACTIONS (18)
  - ABDOMINAL PAIN [None]
  - ANOREXIA [None]
  - ASTHENIA [None]
  - BLOOD CULTURE POSITIVE [None]
  - CHILLS [None]
  - DYSPNOEA [None]
  - FATIGUE [None]
  - HYPERBILIRUBINAEMIA [None]
  - HYPERSENSITIVITY [None]
  - HYPERTENSION [None]
  - HYPOKALAEMIA [None]
  - HYPOTENSION [None]
  - NAUSEA [None]
  - PHARYNGEAL OEDEMA [None]
  - PRURITUS [None]
  - PYREXIA [None]
  - RASH ERYTHEMATOUS [None]
  - VOMITING [None]
